FAERS Safety Report 11103092 (Version 1)
Quarter: 2015Q2

REPORT INFORMATION
  Report Type: Spontaneous
  Country: US (occurrence: US)
  Receive Date: 20150511
  Receipt Date: 20150511
  Transmission Date: 20150821
  Serious: Yes (Other)
  Sender: FDA-Public Use
  Company Number: US-PFIZER INC-2015158209

PATIENT
  Sex: Female

DRUGS (10)
  1. LASIX [Suspect]
     Active Substance: FUROSEMIDE
     Dosage: UNK
  2. CALTRATE [Suspect]
     Active Substance: CALCIUM CARBONATE
     Dosage: UNK
  3. ZOLOFT [Suspect]
     Active Substance: SERTRALINE HYDROCHLORIDE
     Dosage: UNK
  4. LANTUS [Suspect]
     Active Substance: INSULIN GLARGINE
     Indication: TYPE 2 DIABETES MELLITUS
     Dosage: UNK
  5. EFFEXOR XR [Suspect]
     Active Substance: VENLAFAXINE HYDROCHLORIDE
     Dosage: UNK
  6. TRAMADOL [Suspect]
     Active Substance: TRAMADOL
     Dosage: UNK
  7. PRINIVIL [Suspect]
     Active Substance: LISINOPRIL
     Dosage: UNK
  8. GABAPENTIN. [Suspect]
     Active Substance: GABAPENTIN
     Dosage: UNK
  9. TRAZODONE HYDROCHLORIDE. [Suspect]
     Active Substance: TRAZODONE HYDROCHLORIDE
     Dosage: UNK
  10. ALEVE [Concomitant]
     Active Substance: NAPROXEN SODIUM
     Dosage: UNK

REACTIONS (4)
  - Spinal column stenosis [Unknown]
  - Sciatica [Unknown]
  - Type 2 diabetes mellitus [Unknown]
  - Intervertebral disc protrusion [Unknown]
